FAERS Safety Report 5317706-2 (Version None)
Quarter: 2007Q2

REPORT INFORMATION
  Report Type: 
  Country: None (occurrence: None)
  Receive Date: 20070507
  Receipt Date: 20070426
  Transmission Date: 20071010
  Serious: Yes (Death, Hospitalization)
  Sender: FDA-Public Use
  Company Number: CA-JNJFOC-20060306568

PATIENT
  Sex: Male
  Weight: 78.4 kg

DRUGS (2)
  1. REMICADE [Suspect]
     Dosage: PATIENT RECEIVED A TOTAL OF 16 DOSES.
     Route: 042
  2. REMICADE [Suspect]
     Indication: RHEUMATOID ARTHRITIS
     Route: 042

REACTIONS (3)
  - LUNG INFECTION [None]
  - LUNG NEOPLASM MALIGNANT [None]
  - PNEUMONIA [None]
